FAERS Safety Report 6548960-7 (Version None)
Quarter: 2010Q1

REPORT INFORMATION
  Report Type: 
  Country: None (occurrence: None)
  Receive Date: 20100125
  Receipt Date: 20100113
  Transmission Date: 20100710
  Serious: Yes (Hospitalization, Other)
  Sender: FDA-Public Use
  Company Number: US-TEVA-220622USA

PATIENT
  Sex: Male
  Weight: 2.27 kg

DRUGS (2)
  1. PLAN B [Suspect]
     Indication: POST COITAL CONTRACEPTION
     Route: 064
     Dates: start: 20090308, end: 20090308
  2. PLAN B [Concomitant]

REACTIONS (3)
  - INFECTION [None]
  - JAUNDICE NEONATAL [None]
  - PREMATURE BABY [None]
